FAERS Safety Report 13784811 (Version 17)
Quarter: 2018Q1

REPORT INFORMATION
  Report Type: Report from Study
  Country: DE (occurrence: DE)
  Receive Date: 20170725
  Receipt Date: 20180125
  Transmission Date: 20180508
  Serious: Yes (Life-Threatening, Hospitalization)
  Sender: FDA-Public Use
  Company Number: DE-EISAI MEDICAL RESEARCH-EC-2017-028608

PATIENT
  Age: 66 Year
  Sex: Female
  Weight: 76 kg

DRUGS (5)
  1. VITAMIN B6 [Concomitant]
     Active Substance: PYRIDOXINE HYDROCHLORIDE
  2. IRINOTECAN [Concomitant]
     Active Substance: IRINOTECAN
  3. HALAVEN [Suspect]
     Active Substance: ERIBULIN MESYLATE
     Indication: BREAST CANCER METASTATIC
     Route: 041
     Dates: start: 20170530, end: 20170712
  4. HALAVEN [Suspect]
     Active Substance: ERIBULIN MESYLATE
     Route: 041
     Dates: start: 20170726
  5. TORASEMID [Concomitant]
     Active Substance: TORSEMIDE

REACTIONS (10)
  - Diarrhoea [Recovering/Resolving]
  - Fatigue [Not Recovered/Not Resolved]
  - Leukopenia [Not Recovered/Not Resolved]
  - Neuropathy peripheral [Not Recovered/Not Resolved]
  - Hypokalaemia [Recovered/Resolved]
  - Visual impairment [Not Recovered/Not Resolved]
  - Cough [Recovering/Resolving]
  - Febrile infection [Recovering/Resolving]
  - Dyspnoea [Recovered/Resolved]
  - Malaise [Recovered/Resolved]

NARRATIVE: CASE EVENT DATE: 20170606
